FAERS Safety Report 6936071-8 (Version None)
Quarter: 2010Q3

REPORT INFORMATION
  Report Type: 
  Country: None (occurrence: None)
  Receive Date: 20100817
  Receipt Date: 20090922
  Transmission Date: 20110219
  Serious: Yes (Other)
  Sender: FDA-Public Use
  Company Number: WWISSUE-348

PATIENT
  Sex: Female

DRUGS (1)
  1. METHOCARBAMOL TAB [Suspect]

REACTIONS (1)
  - BURNING SENSATION [None]
